FAERS Safety Report 23678185 (Version 1)
Quarter: 2024Q1

REPORT INFORMATION
  Report Type: Spontaneous
  Country: US (occurrence: None)
  Receive Date: 20240326
  Receipt Date: 20240326
  Transmission Date: 20240409
  Serious: No
  Sender: FDA-Public Use
  Company Number: None

PATIENT
  Age: 68 Year
  Sex: 0

DRUGS (1)
  1. RYTARY [Suspect]
     Active Substance: CARBIDOPA\LEVODOPA
     Dosage: 4 UNK -UNKNOWN 3 TIMES A DAY ORL
     Route: 048

REACTIONS (3)
  - Anxiety [None]
  - Nervousness [None]
  - Dyspnoea [None]

NARRATIVE: CASE EVENT DATE: 20240326
